FAERS Safety Report 8803345 (Version 1)
Quarter: 2012Q4

REPORT INFORMATION
  Report Type: 
  Country: BR (occurrence: BR)
  Receive Date: 20120924
  Receipt Date: 20120924
  Transmission Date: 20130627
  Serious: Yes (Hospitalization)
  Sender: FDA-Public Use
  Company Number: BR-JNJFOC-20120905375

PATIENT
  Age: 56 Year
  Sex: Female

DRUGS (2)
  1. RISPERDAL CONSTA [Suspect]
     Indication: BIPOLAR DISORDER
     Route: 030
     Dates: start: 20120820
  2. RIVOTRIL [Concomitant]
     Indication: BIPOLAR DISORDER
     Route: 065
     Dates: start: 2010

REACTIONS (2)
  - Hospitalisation [Unknown]
  - Drug prescribing error [Not Recovered/Not Resolved]
